FAERS Safety Report 20572444 (Version 1)
Quarter: 2022Q1

REPORT INFORMATION
  Report Type: Report from Study
  Country: FR (occurrence: None)
  Receive Date: 20220309
  Receipt Date: 20220309
  Transmission Date: 20220424
  Serious: Yes (Hospitalization)
  Sender: FDA-Public Use
  Company Number: 2022A100082

PATIENT
  Age: 40 Year
  Sex: Female

DRUGS (10)
  1. EVUSHELD [Suspect]
     Active Substance: CILGAVIMAB\TIXAGEVIMAB
     Indication: Prophylaxis
     Dosage: TIXAGEVIMAB 150 MG/CILGAVIMAB 150 MG
     Route: 030
     Dates: start: 20220118, end: 20220214
  2. DEXAMETHASONE [Concomitant]
     Active Substance: DEXAMETHASONE
  3. LOVENOX [Concomitant]
     Active Substance: ENOXAPARIN SODIUM
     Dosage: 4000 UI TWICE DAILY
     Route: 058
  4. DOLIPRANE [Concomitant]
     Active Substance: ACETAMINOPHEN
     Dosage: 1G AT 4 TABLETS DAILY
  5. PREGABALIN [Concomitant]
     Active Substance: PREGABALIN
     Dosage: 300 MG AT 1 TABLET DAILY
  6. RIVOTRIL [Concomitant]
     Active Substance: CLONAZEPAM
     Dosage: 2.5 ML AT 5 DROPS IN THE EVENING
  7. FOLIC ACID [Concomitant]
     Active Substance: FOLIC ACID
     Dosage: 5 MG AT 1 TABLET DAILY IN THE MORNING
  8. FERROUS SULFATE [Concomitant]
     Active Substance: FERROUS SULFATE
     Dosage: 80 AT 1 TABLET DAILY IN THE MORNING
  9. DEXAMETHASONE SODIUM PHOSPHATE [Concomitant]
     Active Substance: DEXAMETHASONE SODIUM PHOSPHATE
     Dosage: 1 DROP DAILY
  10. RITUXIMAB [Concomitant]
     Active Substance: RITUXIMAB
     Dates: end: 20210916

REACTIONS (2)
  - COVID-19 [Recovering/Resolving]
  - Drug ineffective [Recovering/Resolving]

NARRATIVE: CASE EVENT DATE: 20220128
